FAERS Safety Report 14115550 (Version 1)
Quarter: 2017Q4

REPORT INFORMATION
  Report Type: Other
  Country: US (occurrence: US)
  Receive Date: 20171023
  Receipt Date: 20171023
  Transmission Date: 20180321
  Serious: Yes (Hospitalization)
  Sender: FDA-Public Use
  Company Number: US-ALSI-201700388

PATIENT
  Age: 7 Decade
  Sex: Male

DRUGS (1)
  1. OXYGEN USP [Suspect]
     Active Substance: OXYGEN
     Indication: PRODUCT USED FOR UNKNOWN INDICATION
     Route: 055

REACTIONS (3)
  - Intentional product misuse [Unknown]
  - Accident [Unknown]
  - Respiratory fume inhalation disorder [Unknown]

NARRATIVE: CASE EVENT DATE: 20171017
